FAERS Safety Report 5113537-7 (Version None)
Quarter: 2006Q3

REPORT INFORMATION
  Report Type: 
  Country: None (occurrence: None)
  Receive Date: 20060921
  Receipt Date: 20060921
  Transmission Date: 20061208
  Serious: Yes (Life-Threatening, Hospitalization)
  Sender: FDA-Public Use
  Company Number: None

PATIENT
  Age: 25 Year
  Sex: Female
  Weight: 65.9 kg

DRUGS (2)
  1. ETHINYL ESTRADIOL/DROSPIRENONE [Suspect]
     Indication: ORAL CONTRACEPTION
     Dosage: 0.03MG/3MG PO QD
     Route: 048
     Dates: start: 20060304, end: 20060604
  2. MULTIVITAMIN [Concomitant]

REACTIONS (1)
  - PULMONARY EMBOLISM [None]
